FAERS Safety Report 8625593-X (Version None)
Quarter: 2012Q3

REPORT INFORMATION
  Report Type: 
  Country: None (occurrence: None)
  Receive Date: 20120827
  Receipt Date: 20120821
  Transmission Date: 20120928
  Serious: Yes (Death, Other)
  Sender: FDA-Public Use
  Company Number: US-PFIZER INC-2012205312

PATIENT
  Age: 29 Year
  Sex: Male

DRUGS (5)
  1. ALCOHOL [Interacting]
  2. XANAX [Concomitant]
     Dosage: UNK
  3. ADDERALL [Concomitant]
     Dosage: UNK
  4. VIAGRA [Suspect]
     Dosage: UNK
  5. COCAINE [Interacting]

REACTIONS (6)
  - EPISTAXIS [None]
  - OVERDOSE [None]
  - EAR HAEMORRHAGE [None]
  - EYE DISORDER [None]
  - DEATH [None]
  - DRUG INTERACTION [None]
